FAERS Safety Report 5489487-3 (Version None)
Quarter: 2007Q4

REPORT INFORMATION
  Report Type: 
  Country: None (occurrence: None)
  Receive Date: 20071018
  Receipt Date: 20071011
  Transmission Date: 20080405
  Serious: Yes (Hospitalization)
  Sender: FDA-Public Use
  Company Number: US-AVENTIS-200618561US

PATIENT
  Sex: Male

DRUGS (4)
  1. KETEK [Suspect]
     Dates: start: 20060828, end: 20060911
  2. PROTONIX [Concomitant]
     Indication: GASTROOESOPHAGEAL REFLUX DISEASE
     Route: 048
     Dates: start: 20060828
  3. ADVAIR DISKUS 100/50 [Concomitant]
     Indication: BRONCHITIS
     Dosage: DOSE: 280/50
     Dates: start: 20060828, end: 20060910
  4. XOPENEX [Concomitant]
     Indication: BRONCHITIS
     Dosage: DOSE QUANTITY: 425
     Dates: start: 20060828

REACTIONS (6)
  - ABDOMINAL DISTENSION [None]
  - FLUID RETENTION [None]
  - HEPATOMEGALY [None]
  - JAUNDICE [None]
  - OEDEMA PERIPHERAL [None]
  - TREMOR [None]
